APPROVED DRUG PRODUCT: DICLOFENAC SODIUM
Active Ingredient: DICLOFENAC SODIUM
Strength: 25MG
Dosage Form/Route: TABLET, DELAYED RELEASE;ORAL
Application: A090066 | Product #001 | TE Code: AB
Applicant: UNIQUE PHARMACEUTICAL LABORATORIES A DIV OF JB CHEMICALS AND PHARMACEUTICALS LTD
Approved: Dec 1, 2010 | RLD: No | RS: Yes | Type: RX